FAERS Safety Report 24404250 (Version 1)
Quarter: 2024Q4

REPORT INFORMATION
  Report Type: Spontaneous
  Country: US (occurrence: None)
  Receive Date: 20241004
  Receipt Date: 20241004
  Transmission Date: 20250115
  Serious: Yes (Other)
  Sender: Public
  Company Number: None

PATIENT
  Age: 46 Year
  Sex: Female

DRUGS (1)
  1. PROGESTERONE [Suspect]
     Active Substance: PROGESTERONE
     Indication: Infertility female
     Dosage: FREQUENCY : DAILY;?

REACTIONS (5)
  - Pregnancy [None]
  - Exposure during pregnancy [None]
  - Abortion [None]
  - Injection site pruritus [None]
  - Injection site erythema [None]
